FAERS Safety Report 7701491-0 (Version None)
Quarter: 2011Q3

REPORT INFORMATION
  Report Type: 
  Country: None (occurrence: None)
  Receive Date: 20110822
  Receipt Date: 20110817
  Transmission Date: 20111222
  Serious: Yes (Hospitalization)
  Sender: FDA-Public Use
  Company Number: US-MERCK-1107USA03824

PATIENT
  Age: 63 Year
  Sex: Male

DRUGS (3)
  1. LANTUS [Concomitant]
     Route: 065
  2. ROCEPHIN [Concomitant]
     Route: 065
  3. JANUMET [Suspect]
     Indication: TYPE 2 DIABETES MELLITUS
     Route: 048

REACTIONS (3)
  - OSTEOMYELITIS [None]
  - ABDOMINAL PAIN [None]
  - HEPATIC ENZYME INCREASED [None]
